FAERS Safety Report 4898078-4 (Version None)
Quarter: 2006Q1

REPORT INFORMATION
  Report Type: 
  Country: None (occurrence: None)
  Receive Date: 20060130
  Receipt Date: 20060116
  Transmission Date: 20060701
  Serious: Yes (Other)
  Sender: FDA-Public Use
  Company Number: SUS1-2006-00072

PATIENT
  Age: 37 Year
  Sex: Female
  Weight: 72.6 kg

DRUGS (9)
  1. EQUETRO [Suspect]
     Indication: BIPOLAR DISORDER
     Dosage: 200 MG, 2X/DAY:BID, ORAL
     Route: 048
     Dates: start: 20051101
  2. NORVASC [Concomitant]
  3. PRILOSEC [Concomitant]
  4. AMBIEN [Concomitant]
  5. CYMBALTA [Concomitant]
  6. LORAZEPAM [Concomitant]
  7. LOTREL [Concomitant]
  8. BENADRYL (DIPHENHYDRAMINE, PHENYLPROPANOLAMINE HYDROCHLORIDE) [Concomitant]
  9. EXCEDRIN (CAFFEINE, ACETYLSALICYLIC ACID) [Concomitant]

REACTIONS (2)
  - BLOOD PRESSURE DIASTOLIC INCREASED [None]
  - DECREASED APPETITE [None]
